FAERS Safety Report 6988173-8 (Version None)
Quarter: 2010Q3

REPORT INFORMATION
  Report Type: 
  Country: None (occurrence: None)
  Receive Date: 20100916
  Receipt Date: 20100907
  Transmission Date: 20110219
  Serious: Yes (Other)
  Sender: FDA-Public Use
  Company Number: IN-ROCHE-725738

PATIENT
  Sex: Male

DRUGS (1)
  1. ACTEMRA [Suspect]
     Indication: RHEUMATOID ARTHRITIS
     Dosage: FORM INFUSION
     Route: 065
     Dates: start: 20100901

REACTIONS (2)
  - ARTHRALGIA [None]
  - JOINT STIFFNESS [None]
